FAERS Safety Report 20690215 (Version 3)
Quarter: 2022Q4

REPORT INFORMATION
  Report Type: Spontaneous
  Country: IE (occurrence: IE)
  Receive Date: 20220408
  Receipt Date: 20221217
  Transmission Date: 20230113
  Serious: Yes (Hospitalization, Other)
  Sender: FDA-Public Use
  Company Number: IE-NOVARTISPH-NVSC2022IE074459

PATIENT
  Sex: Female

DRUGS (9)
  1. OMEPRAZOLE [Suspect]
     Active Substance: OMEPRAZOLE
     Indication: Foetal exposure during pregnancy
     Dosage: UNK, (MATERNAL DOSE: 40 MG)
     Route: 064
  2. OMEPRAZOLE [Suspect]
     Active Substance: OMEPRAZOLE
     Dosage: MATERNAL DOSE ON 18 AUG 2021
     Route: 064
  3. ONDANSETRON [Suspect]
     Active Substance: ONDANSETRON
     Indication: Foetal exposure during pregnancy
     Dosage: MATERNAL DOSE IN 18 AUG 2021
     Route: 064
  4. QUETIAPINE [Suspect]
     Active Substance: QUETIAPINE
     Indication: Foetal exposure during pregnancy
     Dosage: MATERNAL DOSE: 75 MG, QD
     Route: 064
  5. MIRTAZAPINE [Suspect]
     Active Substance: MIRTAZAPINE
     Indication: Foetal exposure during pregnancy
     Dosage: UNK, (MATERNAL DOSE: 30 MG)
     Route: 064
  6. PROCHLORPERAZINE [Suspect]
     Active Substance: PROCHLORPERAZINE
     Indication: Foetal exposure during pregnancy
     Dosage: MATERNAL DOSE ON 03 NOV 2021
     Route: 064
  7. CANNABIS SATIVA SUBSP. INDICA TOP [Suspect]
     Active Substance: CANNABIS SATIVA SUBSP. INDICA TOP
     Indication: Foetal exposure during pregnancy
     Dosage: UNK, (MATERNAL DOSE: NOT REPORTED)
     Route: 064
  8. PERTUSSIS VACCINE [Suspect]
     Active Substance: PERTUSSIS VACCINE
     Indication: Foetal exposure during pregnancy
     Dosage: MATERNAL DOSE ON 03 NOV 2021
     Route: 064
  9. INFLUENZA VIRUS VACCINE [Suspect]
     Active Substance: INFLUENZA VIRUS VACCINE
     Indication: Foetal exposure during pregnancy
     Dosage: UNK, (MATERNAL DOSE: NOT REPORTED) ON 03 NOV 2021
     Route: 064

REACTIONS (8)
  - Drug withdrawal syndrome neonatal [Recovered/Resolved]
  - Foetal growth restriction [Unknown]
  - Tremor neonatal [Recovered/Resolved]
  - Yawning [Recovered/Resolved]
  - Sneezing [Recovered/Resolved]
  - Diarrhoea [Recovered/Resolved]
  - Foetal exposure during pregnancy [Unknown]
  - Maternal exposure during pregnancy [Unknown]

NARRATIVE: CASE EVENT DATE: 20210101
